FAERS Safety Report 5190993-X (Version None)
Quarter: 2006Q4

REPORT INFORMATION
  Report Type: 
  Country: None (occurrence: None)
  Receive Date: 20061224
  Receipt Date: 20060914
  Transmission Date: 20070319
  Serious: Yes (Hospitalization, Other)
  Sender: FDA-Public Use
  Company Number: US-ELI_LILLY_AND_COMPANY-US200609003608

PATIENT
  Age: 58 Year
  Sex: Male
  Weight: 84.353 kg

DRUGS (4)
  1. ZYPREXA [Suspect]
     Indication: DEPRESSION
     Dosage: UNK, 4/D
     Dates: start: 19960101, end: 20040101
  2. PROZAC [Concomitant]
     Dates: start: 19960101, end: 20030101
  3. EFFEXOR [Concomitant]
     Dates: start: 19960101, end: 20020101
  4. TENORMIN                                /NEZ/ [Concomitant]
     Dates: start: 19970101

REACTIONS (4)
  - BLOOD GLUCOSE INCREASED [None]
  - DIABETES MELLITUS [None]
  - MYOCARDIAL INFARCTION [None]
  - STENT PLACEMENT [None]
